FAERS Safety Report 4992974-5 (Version None)
Quarter: 2006Q2

REPORT INFORMATION
  Report Type: 
  Country: None (occurrence: None)
  Receive Date: 20060504
  Receipt Date: 20050211
  Transmission Date: 20061013
  Serious: Yes (Hospitalization, Disabling, Other)
  Sender: FDA-Public Use
  Company Number: US-MERCK-0502USA01542

PATIENT
  Age: 54 Year
  Sex: Male
  Weight: 73 kg

DRUGS (3)
  1. VIOXX [Suspect]
     Indication: ARTHRITIS
     Route: 048
     Dates: start: 20000401, end: 20011001
  2. VIOXX [Suspect]
     Indication: BACK PAIN
     Route: 048
     Dates: start: 20000401, end: 20011001
  3. TYLENOL (CAPLET) [Concomitant]
     Route: 065

REACTIONS (5)
  - ANAEMIA [None]
  - BLINDNESS UNILATERAL [None]
  - CEREBROVASCULAR ACCIDENT [None]
  - POLYTRAUMATISM [None]
  - PROSTATE CANCER [None]
